FAERS Safety Report 25016684 (Version 1)
Quarter: 2025Q1

REPORT INFORMATION
  Report Type: Spontaneous
  Country: US (occurrence: US)
  Receive Date: 20250227
  Receipt Date: 20250227
  Transmission Date: 20250409
  Serious: Yes (Hospitalization)
  Sender: GLAND PHARMA LTD
  Company Number: US-GLANDPHARMA-US-2025GLNLIT00417

PATIENT
  Age: 73 Year
  Sex: Female

DRUGS (2)
  1. HALOPERIDOL DECANOATE [Suspect]
     Active Substance: HALOPERIDOL DECANOATE
     Indication: Schizophrenia
     Route: 065
  2. DESMOPRESSIN [Concomitant]
     Active Substance: DESMOPRESSIN
     Route: 065

REACTIONS (1)
  - Hyponatraemia [Recovered/Resolved]
